FAERS Safety Report 9357317 (Version 1)
Quarter: 2013Q2

REPORT INFORMATION
  Report Type: Spontaneous
  Country: DK (occurrence: DK)
  Receive Date: 20130620
  Receipt Date: 20130620
  Transmission Date: 20140414
  Serious: Yes (Hospitalization)
  Sender: FDA-Public Use
  Company Number: DK-AMGEN-DNKSP2012084511

PATIENT
  Age: 49 Year
  Sex: 0

DRUGS (2)
  1. PROLIA [Suspect]
     Indication: OSTEOPOROSIS
     Dosage: 60 MG/ML, UNK
     Dates: start: 201102
  2. ZONEGRAN [Concomitant]
     Indication: EPILEPSY

REACTIONS (1)
  - Appendiceal abscess [Recovered/Resolved]
